FAERS Safety Report 7714723-X (Version None)
Quarter: 2011Q3

REPORT INFORMATION
  Report Type: 
  Country: None (occurrence: None)
  Receive Date: 20110822
  Receipt Date: 20110805
  Transmission Date: 20111222
  Serious: Yes (Death)
  Sender: FDA-Public Use
  Company Number: 2011MA011402

PATIENT
  Age: 39 Year
  Sex: Female

DRUGS (6)
  1. DIAZEPAM [Suspect]
     Indication: OVERDOSE
     Dosage: ;RO;
  2. DOXEPIN [Suspect]
  3. NORDIAZEPAM [Suspect]
  4. METHADONE HCL [Suspect]
     Indication: PAIN
     Dosage: 10 MG; QD;
  5. APAP TAB [Suspect]
     Indication: PAIN
     Dosage: 325 MG; Q6H;
  6. HYDROCODONE BITARTRATE [Suspect]
     Indication: PAIN
     Dosage: 5 MG;Q6H;

REACTIONS (7)
  - ROTATOR CUFF SYNDROME [None]
  - GRIP STRENGTH DECREASED [None]
  - PAIN [None]
  - MULTIPLE DRUG OVERDOSE [None]
  - JOINT RANGE OF MOTION DECREASED [None]
  - DRUG DEPENDENCE [None]
  - REFUSAL OF TREATMENT BY PATIENT [None]
